FAERS Safety Report 5148161-3 (Version None)
Quarter: 2006Q4

REPORT INFORMATION
  Report Type: 
  Country: None (occurrence: None)
  Receive Date: 20061110
  Receipt Date: 20061006
  Transmission Date: 20070319
  Serious: Yes (Disabling)
  Sender: FDA-Public Use
  Company Number: IE-ELI_LILLY_AND_COMPANY-IE200610001159

PATIENT
  Age: 72 Year
  Sex: Female

DRUGS (6)
  1. ZYPREXA [Suspect]
     Indication: PSYCHOTIC DISORDER
     Dosage: 2.5 MG, 2/D
     Route: 048
     Dates: start: 20060616
  2. ZYPREXA [Suspect]
     Dosage: 2.5 MG, DAILY (1/D)
     Route: 048
  3. ALPRAZOLAM [Concomitant]
     Indication: ANXIETY
     Dosage: 0.25 MG, UNK
     Route: 048
  4. SINEMET                                 /NET/ [Concomitant]
     Indication: PARKINSON'S DISEASE
     Dosage: 1 D/F, 3/D
     Route: 048
  5. EFFEXOR XR [Concomitant]
     Indication: DEPRESSION
     Dosage: 225 MG, UNK
     Route: 048
  6. NORTEM [Concomitant]
     Indication: INSOMNIA
     Dosage: 10 MG, UNK

REACTIONS (1)
  - PLEUROTHOTONUS [None]
